FAERS Safety Report 8506052-1 (Version None)
Quarter: 2012Q3

REPORT INFORMATION
  Report Type: 
  Country: None (occurrence: None)
  Receive Date: 20120712
  Receipt Date: 20101014
  Transmission Date: 20120928
  Serious: Yes (Hospitalization, Other)
  Sender: FDA-Public Use
  Company Number: RO-ROCHE-1033915

PATIENT
  Sex: Female
  Weight: 82 kg

DRUGS (4)
  1. ACTEMRA [Suspect]
     Dates: start: 20100701
  2. ACTEMRA [Suspect]
     Indication: RHEUMATOID ARTHRITIS
     Route: 042
     Dates: start: 20100610, end: 20100701
  3. METHOTREXATE [Suspect]
     Indication: RHEUMATOID ARTHRITIS
     Route: 042
     Dates: start: 20040210
  4. LEFLUNOMIDE [Suspect]
     Indication: RHEUMATOID ARTHRITIS
     Route: 048
     Dates: start: 20010211

REACTIONS (2)
  - TENOSYNOVITIS [None]
  - THROMBOCYTOPENIA [None]
